FAERS Safety Report 17637983 (Version 1)
Quarter: 2020Q2

REPORT INFORMATION
  Report Type: Report from Study
  Country: US (occurrence: US)
  Receive Date: 20200407
  Receipt Date: 20200407
  Transmission Date: 20200713
  Serious: No
  Sender: FDA-Public Use
  Company Number: US-KYOWAKIRIN-2020BKK005164

PATIENT

DRUGS (1)
  1. CRYSVITA [Suspect]
     Active Substance: BUROSUMAB-TWZA
     Indication: PRODUCT USED FOR UNKNOWN INDICATION
     Dosage: 50 MG/ML, 1X/4 WEEKS
     Route: 065
     Dates: start: 20190305

REACTIONS (4)
  - Myalgia [Unknown]
  - Injection site pain [Unknown]
  - Injection site mass [Unknown]
  - Muscle spasms [Unknown]

NARRATIVE: CASE EVENT DATE: 201911
